FAERS Safety Report 8807035 (Version 1)
Quarter: 2012Q4

REPORT INFORMATION
  Report Type: 
  Country: US (occurrence: US)
  Receive Date: 20120925
  Receipt Date: 20120925
  Transmission Date: 20130627
  Serious: Yes (Hospitalization)
  Sender: FDA-Public Use
  Company Number: PHEH2012US016643

PATIENT
  Sex: Female
  Weight: 104.31 kg

DRUGS (8)
  1. EXFORGE HCT [Suspect]
     Dosage: 1 DF (160 mg vals, 10 mg amlo and unknown HCTZ), QD
  2. ATENOLOL [Concomitant]
     Dosage: 25 mg, QD
  3. SIMVASTATIN [Concomitant]
     Dosage: 20 mg, QD
  4. HYDROCHLOROTHIAZIDE [Concomitant]
     Dosage: 25 mg, QD
  5. LEVEMIR [Concomitant]
     Dosage: 1 DF (65 units), daily
  6. HUMALOG [Concomitant]
  7. ZOLOFT [Concomitant]
     Dosage: 100 mg, QD
  8. NURONTIN [Concomitant]
     Dosage: 300 mg, QD

REACTIONS (8)
  - Diabetes mellitus inadequate control [Unknown]
  - Polydipsia [Unknown]
  - Polyuria [Unknown]
  - Fatigue [Unknown]
  - Hypertension [Unknown]
  - Depression [Unknown]
  - Treatment noncompliance [None]
  - Economic problem [None]
